FAERS Safety Report 13667147 (Version 1)
Quarter: 2017Q2

REPORT INFORMATION
  Report Type: Spontaneous
  Country: US (occurrence: US)
  Receive Date: 20170619
  Receipt Date: 20170619
  Transmission Date: 20170830
  Serious: No
  Sender: FDA-Public Use
  Company Number: US-BAUSCH-BL-2016-010788

PATIENT
  Sex: Female

DRUGS (1)
  1. RELISTOR [Suspect]
     Active Substance: METHYLNALTREXONE BROMIDE
     Indication: PRODUCT USED FOR UNKNOWN INDICATION
     Route: 065

REACTIONS (2)
  - Infrequent bowel movements [Unknown]
  - Expired product administered [Unknown]
